FAERS Safety Report 5398820-2 (Version None)
Quarter: 2007Q3

REPORT INFORMATION
  Report Type: 
  Country: None (occurrence: None)
  Receive Date: 20070727
  Receipt Date: 20070716
  Transmission Date: 20080115
  Serious: Yes (Hospitalization)
  Sender: FDA-Public Use
  Company Number: US-JNJFOC-20070505511

PATIENT
  Sex: Female
  Weight: 74.84 kg

DRUGS (4)
  1. REMICADE [Suspect]
  2. REMICADE [Suspect]
     Dosage: LAST RECEIVED 3 VIALS
  3. REMICADE [Suspect]
     Dosage: LAST RECEIVED 3 VIALS
  4. REMICADE [Suspect]
     Indication: RHEUMATOID ARTHRITIS
     Dosage: LAST RECEIVED 3 VIALS

REACTIONS (4)
  - NEOPLASM MALIGNANT [None]
  - PANCREATECTOMY [None]
  - RENAL SURGERY [None]
  - SPLENECTOMY [None]
